FAERS Safety Report 19834723 (Version 1)
Quarter: 2021Q3

REPORT INFORMATION
  Report Type: Other
  Country: US (occurrence: US)
  Receive Date: 20210915
  Receipt Date: 20210915
  Transmission Date: 20211014
  Serious: No
  Sender: FDA-Public Use
  Company Number: US-LEADIANT BIOSCIENCES INC-2020STPI000436

PATIENT
  Age: 36 Year
  Sex: Female

DRUGS (4)
  1. POTASSIUM CITRATE MICRO [Concomitant]
  2. BIOTIN [Concomitant]
     Active Substance: BIOTIN
  3. MATULANE [Suspect]
     Active Substance: PROCARBAZINE HYDROCHLORIDE
     Indication: BRAIN NEOPLASM MALIGNANT
     Dosage: 50 MG, 2 CAPSULES ON DAYS 8?21 OF EACH 28 DAYS CYCLE
     Route: 048
     Dates: start: 20201012
  4. ONDANSETRON [Concomitant]
     Active Substance: ONDANSETRON

REACTIONS (4)
  - Constipation [Unknown]
  - Nausea [Unknown]
  - Decreased appetite [Unknown]
  - Vomiting [Unknown]

NARRATIVE: CASE EVENT DATE: 20201023
